FAERS Safety Report 9918913 (Version 16)
Quarter: 2015Q2

REPORT INFORMATION
  Report Type: Spontaneous
  Country: US (occurrence: US)
  Receive Date: 20140224
  Receipt Date: 20150526
  Transmission Date: 20150821
  Serious: Yes (Hospitalization, Other)
  Sender: FDA-Public Use
  Company Number: US-PFIZER INC-2014048879

PATIENT
  Age: 74 Year
  Sex: Male
  Weight: 118 kg

DRUGS (18)
  1. OMEPRAZOLE. [Concomitant]
     Active Substance: OMEPRAZOLE
     Dosage: 20 MG, DAILY (BEFORE MEALS PM)
     Route: 048
  2. HYDROCHLOROTHIAZIDE. [Concomitant]
     Active Substance: HYDROCHLOROTHIAZIDE
     Dosage: 25 MG, DAILY BEFORE MORNING MEAL
     Route: 048
  3. SUTENT [Suspect]
     Active Substance: SUNITINIB MALATE
     Indication: METASTATIC RENAL CELL CARCINOMA
     Dosage: 50 MG DAILY CYCLIC (ON X 4 WEEKS OFF 2 WEEKS)
     Dates: start: 20140131, end: 20141014
  4. LISINOPRIL. [Concomitant]
     Active Substance: LISINOPRIL
     Dosage: 30 MG, DAILY
  5. CARAC [Concomitant]
     Active Substance: FLUOROURACIL
     Dosage: UNK
  6. LEVOTHYROXINE SODIUM. [Concomitant]
     Active Substance: LEVOTHYROXINE SODIUM
     Dosage: 100 MCG BEFORE EVENING MEAL
     Route: 048
  7. COUMADIN [Concomitant]
     Active Substance: WARFARIN SODIUM
     Dosage: 5 MG, DAILY
     Route: 048
     Dates: end: 20140509
  8. ENOXAPARIN SODIUM. [Concomitant]
     Active Substance: ENOXAPARIN SODIUM
     Dosage: 120 MG/0.8ML, 2X/DAY
     Route: 058
  9. PROMETHAZINE HYDROCHLORIDE. [Concomitant]
     Active Substance: PROMETHAZINE HYDROCHLORIDE
  10. PROPRANOLOL [Concomitant]
     Active Substance: PROPRANOLOL\PROPRANOLOL HYDROCHLORIDE
     Dosage: UNK
  11. SUTENT [Suspect]
     Active Substance: SUNITINIB MALATE
     Dosage: 37.5 MG, CYCLIC 28 DAYS ON AND 14 DAY OFF
     Dates: start: 20141031, end: 20150402
  12. VESICARE [Concomitant]
     Active Substance: SOLIFENACIN SUCCINATE
     Dosage: 10 MG, DAILY (BEDTIME)
     Route: 048
  13. HYDROCORTISONE. [Concomitant]
     Active Substance: HYDROCORTISONE
     Dosage: UNK
  14. LISINOPRIL. [Concomitant]
     Active Substance: LISINOPRIL
     Dosage: 40 MG, DAILY BEFORE MORNING MEAL.
     Route: 048
  15. GABAPENTIN. [Concomitant]
     Active Substance: GABAPENTIN
     Dosage: 400 MG, UNK (TAKE AS DIRECTED)
     Route: 048
  16. SIMVASTATIN. [Concomitant]
     Active Substance: SIMVASTATIN
     Dosage: 20 MG, DAILY BEFORE MORNING MEAL
     Route: 048
  17. ASPIRIN. [Concomitant]
     Active Substance: ASPIRIN
     Dosage: 81 MG, DAILY
     Dates: start: 20140510
  18. FLUDROCORTISONE [Concomitant]
     Active Substance: FLUDROCORTISONE
     Dosage: UNK

REACTIONS (28)
  - Pain in extremity [Recovered/Resolved]
  - Headache [Unknown]
  - Musculoskeletal pain [Recovered/Resolved]
  - Hormone level abnormal [Unknown]
  - Thrombosis [Recovered/Resolved]
  - Depression [Unknown]
  - Hypothyroidism [Recovered/Resolved]
  - Deep vein thrombosis [Recovering/Resolving]
  - Oral pain [Recovering/Resolving]
  - International normalised ratio increased [Recovered/Resolved]
  - Decreased appetite [Recovered/Resolved]
  - Localised infection [Recovered/Resolved]
  - Asthenia [Recovered/Resolved]
  - Ageusia [Unknown]
  - Memory impairment [Unknown]
  - Gastrooesophageal reflux disease [Recovered/Resolved]
  - Glossodynia [Recovering/Resolving]
  - Disease progression [Unknown]
  - Metastatic renal cell carcinoma [Unknown]
  - Stomatitis [Recovering/Resolving]
  - Weight decreased [Recovered/Resolved]
  - Palmar-plantar erythrodysaesthesia syndrome [Recovered/Resolved]
  - Pallor [Recovered/Resolved]
  - Phlebitis superficial [Recovered/Resolved]
  - Fatigue [Unknown]
  - Cognitive disorder [Unknown]
  - Blood pressure increased [Recovered/Resolved]
  - Chest pain [Unknown]

NARRATIVE: CASE EVENT DATE: 2014
